FAERS Safety Report 13988259 (Version 1)
Quarter: 2017Q3

REPORT INFORMATION
  Report Type: Other
  Country: CZ (occurrence: CZ)
  Receive Date: 20170919
  Receipt Date: 20170919
  Transmission Date: 20171128
  Serious: Yes (Other)
  Sender: FDA-Public Use
  Company Number: CZ-MERCK KGAA-2026850

PATIENT
  Age: 63 Year
  Sex: Female

DRUGS (3)
  1. ATRAVEN [Suspect]
     Active Substance: ATORVASTATIN CALCIUM
  2. NOVOTHYROX [Suspect]
     Active Substance: LEVOTHYROXINE SODIUM
     Indication: PRODUCT USED FOR UNKNOWN INDICATION
  3. LAGOSA [Concomitant]

REACTIONS (1)
  - Immune-mediated necrotising myopathy [Recovered/Resolved]

NARRATIVE: CASE EVENT DATE: 201707
